FAERS Safety Report 6080112-X (Version None)
Quarter: 2009Q1

REPORT INFORMATION
  Report Type: 
  Country: None (occurrence: None)
  Receive Date: 20090217
  Receipt Date: 20090205
  Transmission Date: 20090719
  Serious: Yes (Other)
  Sender: FDA-Public Use
  Company Number: NSADSS2003020123

PATIENT
  Age: 73 Year
  Sex: Male

DRUGS (2)
  1. REMICADE [Suspect]
     Indication: CROHN'S DISEASE
     Route: 041
  2. AZATHIOPRINE [Suspect]
     Indication: CROHN'S DISEASE

REACTIONS (1)
  - HISTOPLASMOSIS [None]
